FAERS Safety Report 25582758 (Version 4)
Quarter: 2025Q4

REPORT INFORMATION
  Report Type: Report from Study
  Country: CA (occurrence: CA)
  Receive Date: 20250720
  Receipt Date: 20251019
  Transmission Date: 20260117
  Serious: Yes (Hospitalization, Other)
  Sender: ABBVIE
  Company Number: CA-ABBVIE-6376985

PATIENT
  Age: 41 Year
  Sex: Female

DRUGS (1)
  1. BOTOX [Suspect]
     Active Substance: ONABOTULINUMTOXINA
     Indication: Hyperhidrosis
     Dosage: TIME INTERVAL: AS NECESSARY: 200 UNITS
     Route: 065
     Dates: start: 20200820, end: 20200820

REACTIONS (7)
  - Precancerous condition [Unknown]
  - Generalised anxiety disorder [Unknown]
  - Polycystic ovarian syndrome [Unknown]
  - Illness [Unknown]
  - Obesity [Unknown]
  - Nightmare [Unknown]
  - Mental disorder [Unknown]
